APPROVED DRUG PRODUCT: CARBAMAZEPINE
Active Ingredient: CARBAMAZEPINE
Strength: 300MG
Dosage Form/Route: CAPSULE, EXTENDED RELEASE;ORAL
Application: A201106 | Product #003
Applicant: TARO PHARMACEUTICAL INDUSTRIES LTD
Approved: Jun 21, 2013 | RLD: No | RS: No | Type: DISCN